FAERS Safety Report 9833194 (Version 2)
Quarter: 2014Q2

REPORT INFORMATION
  Report Type: Spontaneous
  Country: SE (occurrence: SE)
  Receive Date: 20140121
  Receipt Date: 20140416
  Transmission Date: 20141212
  Serious: Yes (Death, Hospitalization)
  Sender: FDA-Public Use
  Company Number: SE-ABBVIE-14P-150-1193148-00

PATIENT
  Sex: Female

DRUGS (4)
  1. ERGENYL RETARD [Suspect]
     Indication: EPILEPSY
     Dosage: FREQUENCY UNKNOWN
     Route: 065
     Dates: start: 20130430
  2. ERGENYL RETARD [Suspect]
     Dosage: FREQUENCY UNKNOWN
     Route: 065
     Dates: start: 20131114
  3. LAMOTRIGINE [Suspect]
     Indication: PRODUCT USED FOR UNKNOWN INDICATION
     Dosage: UNKOWN DAILY
     Route: 048
     Dates: start: 20131127
  4. IPREN [Suspect]
     Indication: PYREXIA
     Dosage: FREQUENCY UNKNOWN
     Route: 065
     Dates: start: 20131212, end: 20131212

REACTIONS (1)
  - Reye^s syndrome [Fatal]
